FAERS Safety Report 14354820 (Version 1)
Quarter: 2018Q1

REPORT INFORMATION
  Report Type: Spontaneous
  Country: US (occurrence: US)
  Receive Date: 20180104
  Receipt Date: 20180104
  Transmission Date: 20180509
  Serious: No
  Sender: FDA-Public Use
  Company Number: None

PATIENT

DRUGS (1)
  1. DILAUDID [Suspect]
     Active Substance: HYDROMORPHONE HYDROCHLORIDE
     Route: 040

REACTIONS (3)
  - Product label issue [None]
  - Incorrect dose administered [None]
  - Product packaging quantity issue [None]

NARRATIVE: CASE EVENT DATE: 20180102
